FAERS Safety Report 5274045-6 (Version None)
Quarter: 2007Q1

REPORT INFORMATION
  Report Type: 
  Country: None (occurrence: None)
  Receive Date: 20070323
  Receipt Date: 20070308
  Transmission Date: 20070707
  Serious: Yes (Hospitalization)
  Sender: FDA-Public Use
  Company Number: US-AMGEN-STX214353

PATIENT
  Sex: Male

DRUGS (2)
  1. ENBREL [Suspect]
     Indication: PSORIATIC ARTHROPATHY
     Route: 058
     Dates: start: 20020906
  2. ENBREL [Suspect]
     Indication: PSORIASIS

REACTIONS (7)
  - ABDOMINAL PAIN UPPER [None]
  - ANKLE FRACTURE [None]
  - ARTHRALGIA [None]
  - FALL [None]
  - JOINT SWELLING [None]
  - OPEN FRACTURE [None]
  - PSORIASIS [None]
